FAERS Safety Report 8020149-4 (Version None)
Quarter: 2012Q1

REPORT INFORMATION
  Report Type: 
  Country: None (occurrence: None)
  Receive Date: 20120103
  Receipt Date: 20111223
  Transmission Date: 20120608
  Serious: Yes (Other)
  Sender: FDA-Public Use
  Company Number: US-BAYER-2011-124326

PATIENT
  Age: 56 Year
  Sex: Male

DRUGS (8)
  1. PROTONIX [Concomitant]
  2. PREDNISONE TAB [Concomitant]
  3. VITAMIN D [Concomitant]
  4. DEPO-TESTOSTERONE [Concomitant]
  5. LEVITRA [Suspect]
     Indication: ERECTILE DYSFUNCTION
     Dosage: 0.5 DF, UNK
     Route: 048
     Dates: start: 20110101, end: 20110101
  6. SOMA [Concomitant]
  7. LEVITRA [Suspect]
     Dosage: 20 MG, PRN
     Route: 048
     Dates: start: 20111001, end: 20111221
  8. ENZYTE SUPPLEMENT [Concomitant]

REACTIONS (2)
  - VENTRICULAR EXTRASYSTOLES [None]
  - ERECTILE DYSFUNCTION [None]
